FAERS Safety Report 9426336 (Version 1)
Quarter: 2013Q3

REPORT INFORMATION
  Report Type: Spontaneous
  Country: US (occurrence: None)
  Receive Date: 20130729
  Receipt Date: 20130729
  Transmission Date: 20140515
  Serious: Yes (Other)
  Sender: FDA-Public Use
  Company Number: None

PATIENT
  Age: 61 Year
  Sex: Male
  Weight: 230 kg

DRUGS (1)
  1. MIGRANE FORMULA [Suspect]
     Dosage: 1 OR 2 DAILY MOUTH
     Route: 048
     Dates: start: 201303

REACTIONS (3)
  - Product tampering [None]
  - Abdominal discomfort [None]
  - Product quality issue [None]
